FAERS Safety Report 18919787 (Version 1)
Quarter: 2021Q1

REPORT INFORMATION
  Report Type: Report from Study
  Country: None (occurrence: US)
  Receive Date: 20210221
  Receipt Date: 20210221
  Transmission Date: 20210420
  Serious: Yes (Hospitalization, Other)
  Sender: FDA-Public Use
  Company Number: US-ABBVIE-21K-163-3730197-00

PATIENT
  Sex: Male

DRUGS (2)
  1. IMBRUVICA [Suspect]
     Active Substance: IBRUTINIB
     Indication: CHRONIC LYMPHOCYTIC LEUKAEMIA
     Route: 048
     Dates: start: 201811
  2. IMBRUVICA [Suspect]
     Active Substance: IBRUTINIB
     Route: 048
     Dates: start: 201811

REACTIONS (8)
  - Intestinal dilatation [Recovering/Resolving]
  - Intestinal haemorrhage [Unknown]
  - COVID-19 [Unknown]
  - Sepsis [Recovering/Resolving]
  - Dehydration [Recovering/Resolving]
  - Pneumonia [Recovering/Resolving]
  - Intestinal obstruction [Unknown]
  - Abdominal pain upper [Unknown]
